FAERS Safety Report 4957247-5 (Version None)
Quarter: 2006Q1

REPORT INFORMATION
  Report Type: 
  Country: None (occurrence: None)
  Receive Date: 20060329
  Receipt Date: 20060327
  Transmission Date: 20060701
  Serious: Yes (Hospitalization)
  Sender: FDA-Public Use
  Company Number: US-MERCK-0603USA04206

PATIENT
  Sex: Female

DRUGS (3)
  1. VIOXX [Suspect]
     Route: 048
     Dates: start: 20020101, end: 20040930
  2. CELEBREX [Suspect]
     Route: 048
     Dates: start: 20020101, end: 20030201
  3. BEXTRA [Suspect]
     Route: 048
     Dates: start: 20020101, end: 20030201

REACTIONS (4)
  - DEEP VEIN THROMBOSIS [None]
  - INJURY [None]
  - MENTAL DISORDER [None]
  - PAIN [None]
